FAERS Safety Report 9749211 (Version 2)
Quarter: 2014Q1

REPORT INFORMATION
  Report Type: Spontaneous
  Country: US (occurrence: US)
  Receive Date: 20131212
  Receipt Date: 20140312
  Transmission Date: 20141002
  Serious: No
  Sender: FDA-Public Use
  Company Number: US-INCYTE CORPORATION-2013IN002657

PATIENT
  Sex: Female

DRUGS (9)
  1. JAKAFI [Suspect]
     Indication: MYELOFIBROSIS
     Dosage: 20 MG, BID
     Route: 048
     Dates: start: 201204
  2. ALLOPURINOL [Concomitant]
  3. LEVOTHYROXINE [Concomitant]
  4. PREDNISONE [Concomitant]
  5. LEXAPRO [Concomitant]
  6. COLCRYS [Concomitant]
  7. FLONASE [Concomitant]
  8. RAMADOL [Concomitant]
  9. CELEBREX [Concomitant]

REACTIONS (1)
  - Rash pustular [Recovered/Resolved]
